FAERS Safety Report 17064727 (Version 1)
Quarter: 2019Q4

REPORT INFORMATION
  Report Type: Spontaneous
  Country: GR (occurrence: GR)
  Receive Date: 20191122
  Receipt Date: 20191122
  Transmission Date: 20200122
  Serious: Yes (Other)
  Sender: FDA-Public Use
  Company Number: GR-MYLANLABS-2019M1112651

PATIENT
  Age: 76 Year
  Sex: Male

DRUGS (3)
  1. CIPROFLOXACIN. [Concomitant]
     Active Substance: CIPROFLOXACIN
     Indication: POSTOPERATIVE CARE
     Dosage: UNK
  2. GENTAMYCIN                         /00047101/ [Interacting]
     Active Substance: GENTAMICIN
     Indication: ENDOCARDITIS
     Dosage: UNK
  3. VANCOMYCIN [Suspect]
     Active Substance: VANCOMYCIN
     Indication: ENDOCARDITIS
     Dosage: UNK

REACTIONS (2)
  - Renal impairment [Unknown]
  - Drug interaction [Recovered/Resolved]
